FAERS Safety Report 10464823 (Version 3)
Quarter: 2014Q4

REPORT INFORMATION
  Report Type: Report from Study
  Country: TR (occurrence: TR)
  Receive Date: 20140919
  Receipt Date: 20141112
  Transmission Date: 20150528
  Serious: Yes (Other)
  Sender: FDA-Public Use
  Company Number: TR-BRISTOL-MYERS SQUIBB COMPANY-21394754

PATIENT
  Age: 61 Year
  Sex: Female

DRUGS (7)
  1. EXENATIDE [Suspect]
     Active Substance: EXENATIDE
     Indication: TYPE 2 DIABETES MELLITUS
     Dosage: 10MCG DAILY  ONGOING
     Route: 058
     Dates: start: 20140612, end: 20140901
  2. DIAFORMIN [Concomitant]
     Active Substance: METFORMIN HYDROCHLORIDE
  3. IRBESARTAN + HCTZ [Concomitant]
     Active Substance: HYDROCHLOROTHIAZIDE\IRBESARTAN
  4. ACRIVASTINE + PSEUDOEPHEDRINE HCL [Concomitant]
  5. LERCANIDIPINE HCL [Concomitant]
     Active Substance: LERCANIDIPINE HYDROCHLORIDE
  6. GLICLAZIDE [Concomitant]
     Active Substance: GLICLAZIDE
  7. DULOXETINE HCL [Concomitant]
     Active Substance: DULOXETINE HYDROCHLORIDE

REACTIONS (9)
  - Vomiting [Recovered/Resolved]
  - Cholecystitis [Not Recovered/Not Resolved]
  - Somnolence [Recovered/Resolved]
  - Blood chloride increased [Recovered/Resolved]
  - Fatigue [Recovered/Resolved]
  - Hepatic enzyme increased [Unknown]
  - Nausea [Recovered/Resolved]
  - Alopecia [Recovered/Resolved]
  - Hyperhidrosis [Recovered/Resolved]

NARRATIVE: CASE EVENT DATE: 20140612
